FAERS Safety Report 20134339 (Version 1)
Quarter: 2021Q4

REPORT INFORMATION
  Report Type: Spontaneous
  Country: GB (occurrence: GB)
  Receive Date: 20211201
  Receipt Date: 20211201
  Transmission Date: 20220303
  Serious: Yes (Other)
  Sender: FDA-Public Use
  Company Number: None

PATIENT
  Age: 2 Year
  Sex: Female
  Weight: 14 kg

DRUGS (2)
  1. CYCLOSPORINE [Suspect]
     Active Substance: CYCLOSPORINE
     Indication: Pustular psoriasis
     Dosage: 17.9 MG, BID
     Route: 048
     Dates: start: 20210706, end: 20210713
  2. METHOTREXATE [Concomitant]
     Active Substance: METHOTREXATE
     Indication: Ill-defined disorder
     Dosage: UNK
     Route: 065

REACTIONS (1)
  - Conversion disorder [Recovered/Resolved]

NARRATIVE: CASE EVENT DATE: 20210713
